FAERS Safety Report 7252193-9 (Version None)
Quarter: 2011Q1

REPORT INFORMATION
  Report Type: 
  Country: None (occurrence: None)
  Receive Date: 20110129
  Receipt Date: 20100430
  Transmission Date: 20110831
  Serious: No
  Sender: FDA-Public Use
  Company Number: US-ABBOTT-10P-163-0642423-00

PATIENT
  Sex: Female
  Weight: 113.5 kg

DRUGS (7)
  1. ASACOL HD [Concomitant]
     Indication: CROHN'S DISEASE
     Route: 048
  2. ACTOS [Concomitant]
     Indication: POLYCYSTIC OVARIES
     Route: 048
  3. ROWASA [Concomitant]
     Indication: PRODUCT USED FOR UNKNOWN INDICATION
     Route: 054
  4. IMURAN [Concomitant]
     Indication: PRODUCT USED FOR UNKNOWN INDICATION
     Route: 048
  5. ADVAIR [Concomitant]
     Indication: ASTHMA
     Route: 055
  6. HUMIRA [Suspect]
     Indication: CROHN'S DISEASE
     Dosage: LOADING DOSE STARTED
     Route: 058
  7. HUMIRA [Suspect]
     Route: 058

REACTIONS (4)
  - BUTTERFLY RASH [None]
  - DRUG ADMINISTRATION ERROR [None]
  - FATIGUE [None]
  - SYSTEMIC LUPUS ERYTHEMATOSUS [None]
